FAERS Safety Report 4406244-7 (Version None)
Quarter: 2004Q3

REPORT INFORMATION
  Report Type: 
  Country: None (occurrence: None)
  Receive Date: 20040723
  Receipt Date: 20021220
  Transmission Date: 20050211
  Serious: No
  Sender: FDA-Public Use
  Company Number: US-GLAXOSMITHKLINE-A0389990A

PATIENT
  Age: 61 Year
  Sex: Male

DRUGS (6)
  1. AVANDIA [Suspect]
     Dosage: 4TAB PER DAY
     Route: 048
     Dates: start: 20021201
  2. GLUCOVANCE [Concomitant]
  3. GLYBURIDE [Concomitant]
  4. PRAVACHOL [Concomitant]
  5. AVAPRO [Concomitant]
  6. BISOPROLOL FUMARATE [Concomitant]

REACTIONS (6)
  - BURN OF INTERNAL ORGANS [None]
  - DIARRHOEA [None]
  - ENTERITIS [None]
  - PAIN [None]
  - PHOTOSENSITIVITY REACTION [None]
  - RASH [None]
